FAERS Safety Report 8726508 (Version 2)
Quarter: 2012Q4

REPORT INFORMATION
  Report Type: 
  Country: US (occurrence: US)
  Receive Date: 20120816
  Receipt Date: 20120830
  Transmission Date: 20130627
  Serious: No
  Sender: FDA-Public Use
  Company Number: US-B.I. PHARMACEUTICALS,INC./RIDGEFIELD-2012-BP-17761BP

PATIENT
  Sex: Female

DRUGS (1)
  1. MIRAPEX [Suspect]

REACTIONS (2)
  - Gastric disorder [Unknown]
  - Nausea [Recovered/Resolved]
